FAERS Safety Report 9431796 (Version 3)
Quarter: 2013Q3

REPORT INFORMATION
  Report Type: Spontaneous
  Country: US (occurrence: None)
  Receive Date: 20130726
  Receipt Date: 20130829
  Transmission Date: 20140515
  Serious: Yes (Disabling, Other)
  Sender: FDA-Public Use
  Company Number: ACO_37537_2013

PATIENT
  Age: 70 Year
  Sex: Female
  Weight: 52.2 kg

DRUGS (5)
  1. AMPYRA [Suspect]
     Indication: GAIT DISTURBANCE
     Route: 048
     Dates: start: 2013, end: 20130705
  2. RITALIN (METHYLPHENIDATE HYDROCHLORIDE) [Concomitant]
  3. BACLOFEN (BACLOFEN) [Concomitant]
  4. OXYBUTYNIN (OXYBUTYNIN) [Concomitant]
  5. ZOLOFT (SERTRALINE HYDROCHLORIDE) [Concomitant]

REACTIONS (6)
  - Abasia [None]
  - Abdominal discomfort [None]
  - Walking aid user [None]
  - Balance disorder [None]
  - Multiple sclerosis relapse [None]
  - Back pain [None]
